FAERS Safety Report 11328373 (Version 1)
Quarter: 2015Q3

REPORT INFORMATION
  Report Type: Spontaneous
  Country: US (occurrence: US)
  Receive Date: 20150731
  Receipt Date: 20150731
  Transmission Date: 20151125
  Serious: No
  Sender: FDA-Public Use
  Company Number: US-ABBVIE-15P-163-1390504-00

PATIENT
  Age: 61 Year
  Sex: Female

DRUGS (3)
  1. NIASPAN [Suspect]
     Active Substance: NIACIN
     Route: 048
     Dates: start: 201504
  2. NIASPAN [Suspect]
     Active Substance: NIACIN
     Indication: BLOOD CHOLESTEROL INCREASED
     Dosage: OVER 5 YEARS
     Route: 048
     Dates: end: 201504
  3. NIACIN. [Suspect]
     Active Substance: NIACIN
     Indication: BLOOD CHOLESTEROL INCREASED
     Route: 048
     Dates: start: 201504, end: 201504

REACTIONS (1)
  - Urticaria [Recovered/Resolved]

NARRATIVE: CASE EVENT DATE: 201504
